APPROVED DRUG PRODUCT: TOLTERODINE TARTRATE
Active Ingredient: TOLTERODINE TARTRATE
Strength: 2MG
Dosage Form/Route: TABLET;ORAL
Application: A077006 | Product #002 | TE Code: AB
Applicant: IVAX PHARMACEUTICALS INC SUB TEVA PHARMACEUTICALS USA
Approved: Feb 23, 2015 | RLD: No | RS: No | Type: RX